FAERS Safety Report 17841768 (Version 1)
Quarter: 2020Q2

REPORT INFORMATION
  Report Type: Spontaneous
  Country: CA (occurrence: CA)
  Receive Date: 20200529
  Receipt Date: 20200529
  Transmission Date: 20200714
  Serious: Yes (Other)
  Sender: FDA-Public Use
  Company Number: CA-ROCHE-2604888

PATIENT
  Age: 32 Year
  Sex: Female
  Weight: 88 kg

DRUGS (9)
  1. TRAZODONE [Concomitant]
     Active Substance: TRAZODONE HYDROCHLORIDE
  2. FOLIC ACID. [Concomitant]
     Active Substance: FOLIC ACID
  3. QUETIAPINE. [Concomitant]
     Active Substance: QUETIAPINE
  4. CITALOPRAM [Concomitant]
     Active Substance: CITALOPRAM HYDROBROMIDE
  5. CYANOCOBALAMIN. [Concomitant]
     Active Substance: CYANOCOBALAMIN
  6. OMEPRAZOLE. [Concomitant]
     Active Substance: OMEPRAZOLE
  7. METHOTREXATE. [Suspect]
     Active Substance: METHOTREXATE
     Indication: PRODUCT USED FOR UNKNOWN INDICATION
     Route: 065
  8. PREDNISONE. [Concomitant]
     Active Substance: PREDNISONE
  9. ACTEMRA [Suspect]
     Active Substance: TOCILIZUMAB
     Indication: RHEUMATOID ARTHRITIS
     Dosage: FREQUENCY: CYCLICAL
     Route: 042

REACTIONS (31)
  - Body temperature decreased [Not Recovered/Not Resolved]
  - Erythema [Not Recovered/Not Resolved]
  - Ingrown hair [Not Recovered/Not Resolved]
  - Malaise [Not Recovered/Not Resolved]
  - Nasopharyngitis [Not Recovered/Not Resolved]
  - Weight decreased [Not Recovered/Not Resolved]
  - Abdominal pain [Not Recovered/Not Resolved]
  - Cystitis [Not Recovered/Not Resolved]
  - Pallor [Not Recovered/Not Resolved]
  - Blood pressure increased [Not Recovered/Not Resolved]
  - Inflammatory bowel disease [Not Recovered/Not Resolved]
  - Insomnia [Not Recovered/Not Resolved]
  - Bruxism [Not Recovered/Not Resolved]
  - Headache [Not Recovered/Not Resolved]
  - Infection [Not Recovered/Not Resolved]
  - Infusion site bruising [Not Recovered/Not Resolved]
  - Nausea [Not Recovered/Not Resolved]
  - Ovarian cyst [Not Recovered/Not Resolved]
  - Melanocytic naevus [Not Recovered/Not Resolved]
  - Tooth disorder [Not Recovered/Not Resolved]
  - Arthralgia [Not Recovered/Not Resolved]
  - Hepatic steatosis [Not Recovered/Not Resolved]
  - Oxygen saturation decreased [Not Recovered/Not Resolved]
  - Urinary incontinence [Not Recovered/Not Resolved]
  - Vomiting [Not Recovered/Not Resolved]
  - Anxiety [Not Recovered/Not Resolved]
  - Head discomfort [Not Recovered/Not Resolved]
  - Heart rate decreased [Not Recovered/Not Resolved]
  - Infusion related reaction [Not Recovered/Not Resolved]
  - Pain in extremity [Not Recovered/Not Resolved]
  - Rash [Not Recovered/Not Resolved]
